FAERS Safety Report 22099711 (Version 3)
Quarter: 2024Q1

REPORT INFORMATION
  Report Type: Spontaneous
  Country: US (occurrence: US)
  Receive Date: 20230315
  Receipt Date: 20240301
  Transmission Date: 20240409
  Serious: Yes (Other)
  Sender: FDA-Public Use
  Company Number: US-PFIZER INC-PV202300045126

PATIENT
  Age: 65 Year
  Sex: Female

DRUGS (1)
  1. IBRANCE [Suspect]
     Active Substance: PALBOCICLIB
     Dosage: 125 MG, 1X/DAY
     Dates: start: 2022

REACTIONS (11)
  - Autoimmune disorder [Unknown]
  - Hypothyroidism [Unknown]
  - Dysphonia [Unknown]
  - Fatigue [Unknown]
  - Illness [Unknown]
  - Muscle atrophy [Unknown]
  - Somnolence [Unknown]
  - Frustration tolerance decreased [Unknown]
  - Alopecia [Unknown]
  - Madarosis [Unknown]
  - Physical deconditioning [Unknown]
